FAERS Safety Report 6022253-9 (Version None)
Quarter: 2008Q4

REPORT INFORMATION
  Report Type: 
  Country: None (occurrence: None)
  Receive Date: 20081229
  Receipt Date: 20081218
  Transmission Date: 20090506
  Serious: Yes (Death, Other)
  Sender: FDA-Public Use
  Company Number: AU-PFIZER INC-2008156398

PATIENT

DRUGS (6)
  1. CELECOXIB [Suspect]
     Indication: ARTHRITIS
  2. DICLOFENAC SODIUM [Suspect]
  3. VOLTAREN [Suspect]
  4. ACETAMINOPHEN AND CODEINE PHOSPHATE [Suspect]
  5. CRANBERRY [Suspect]
  6. WARFARIN SODIUM [Suspect]

REACTIONS (2)
  - DEATH [None]
  - HAEMOPTYSIS [None]
